FAERS Safety Report 6790058-7 (Version None)
Quarter: 2010Q2

REPORT INFORMATION
  Report Type: 
  Country: None (occurrence: None)
  Receive Date: 20100624
  Receipt Date: 20100618
  Transmission Date: 20101027
  Serious: Yes (Other)
  Sender: FDA-Public Use
  Company Number: US-BAYER-201017062BCC

PATIENT
  Age: 46 Year
  Sex: Female
  Weight: 132 kg

DRUGS (1)
  1. ALEVE (CAPLET) [Suspect]
     Indication: DRUG USE FOR UNKNOWN INDICATION
     Dosage: AS USED: 220 MG  UNIT DOSE: 220 MG
     Route: 048
     Dates: start: 20100618

REACTIONS (3)
  - ASTHMA [None]
  - DYSPNOEA [None]
  - WHEEZING [None]
